FAERS Safety Report 14450238 (Version 3)
Quarter: 2018Q1

REPORT INFORMATION
  Report Type: Spontaneous
  Country: JP (occurrence: JP)
  Receive Date: 20180129
  Receipt Date: 20180307
  Transmission Date: 20180509
  Serious: Yes (Disabling)
  Sender: FDA-Public Use
  Company Number: JP-ROCHE-2060489

PATIENT
  Sex: Female

DRUGS (1)
  1. LUCENTIS [Suspect]
     Active Substance: RANIBIZUMAB
     Indication: CHOROIDAL NEOVASCULARISATION
     Dosage: 3 INJECTIONS
     Route: 031
     Dates: start: 20121024, end: 20140226

REACTIONS (1)
  - Vitreous haemorrhage [Unknown]

NARRATIVE: CASE EVENT DATE: 20140418
